FAERS Safety Report 5819256-3 (Version None)
Quarter: 2008Q3

REPORT INFORMATION
  Report Type: 
  Country: None (occurrence: None)
  Receive Date: 20080718
  Receipt Date: 20080703
  Transmission Date: 20090109
  Serious: Yes (Death)
  Sender: FDA-Public Use
  Company Number: MK-6030376

PATIENT
  Age: 60 Year
  Sex: Male

DRUGS (8)
  1. PAROXETINE HCL [Suspect]
     Indication: ANXIETY
     Dosage: ORAL
     Route: 048
     Dates: start: 20060906
  2. PAROXETINE HCL [Suspect]
     Indication: DEPRESSION
     Dosage: ORAL
     Route: 048
     Dates: start: 20060906
  3. ASPIRIN [Concomitant]
  4. DIAZEPAM [Concomitant]
  5. METFORMIN HCL [Concomitant]
  6. PERINDOPRIL ERBUMINE [Concomitant]
  7. SALBUTAMOL (SALBUTAMOL) [Concomitant]
  8. SIMVASTATIN (SIMVASTATTN) [Concomitant]

REACTIONS (2)
  - COMPLETED SUICIDE [None]
  - OVERDOSE [None]
